FAERS Safety Report 8484172-8 (Version None)
Quarter: 2012Q3

REPORT INFORMATION
  Report Type: 
  Country: None (occurrence: None)
  Receive Date: 20120703
  Receipt Date: 20120625
  Transmission Date: 20120928
  Serious: Yes (Disabling, Other)
  Sender: FDA-Public Use
  Company Number: US-UCBSA-040192

PATIENT
  Age: 70 Year
  Sex: Male
  Weight: 56.69 kg

DRUGS (7)
  1. CIMZIA [Suspect]
     Indication: CROHN'S DISEASE
     Route: 058
     Dates: start: 20090826, end: 20110101
  2. PERCOCET [Concomitant]
  3. FENTANYL TDS [Concomitant]
     Dosage: MCG PATCHES, TWO PATCH EVERY 3 DAYS
  4. CALCIUM CARBONATE [Concomitant]
  5. MULTI-VITAMIN [Concomitant]
  6. VITAMIN B COMPLEX CAP [Concomitant]
  7. NEXIUM [Concomitant]

REACTIONS (1)
  - LYMPHOMA [None]
